FAERS Safety Report 6702727-5 (Version None)
Quarter: 2010Q2

REPORT INFORMATION
  Report Type: 
  Country: None (occurrence: None)
  Receive Date: 20100429
  Receipt Date: 20100331
  Transmission Date: 20101027
  Serious: Yes (Death, Other)
  Sender: FDA-Public Use
  Company Number: US-BAXTER-2010BH001614

PATIENT
  Age: 69 Year
  Sex: Female

DRUGS (17)
  1. HEPARIN SODIUM INJECTION [Suspect]
     Indication: MYOCARDIAL INFARCTION
     Route: 065
     Dates: start: 20080124, end: 20080131
  2. HEPARIN SODIUM INJECTION [Suspect]
     Route: 065
     Dates: start: 20080206, end: 20080210
  3. HEPARIN SODIUM INJECTION [Suspect]
     Route: 065
     Dates: start: 20070901, end: 20070901
  4. HEPARIN SODIUM INJECTION [Suspect]
     Route: 065
     Dates: start: 20080216, end: 20080219
  5. HEPARIN SODIUM INJECTION [Suspect]
     Route: 042
     Dates: start: 20080124, end: 20080124
  6. LEXAPRO [Concomitant]
     Indication: DRUG USE FOR UNKNOWN INDICATION
     Route: 065
  7. ARICEPT [Concomitant]
     Indication: DRUG USE FOR UNKNOWN INDICATION
     Route: 065
  8. INSULIN [Concomitant]
     Indication: DRUG USE FOR UNKNOWN INDICATION
     Route: 065
  9. ASPIRIN [Concomitant]
     Indication: DRUG USE FOR UNKNOWN INDICATION
     Route: 065
  10. GLIPIZIDE [Concomitant]
     Indication: DRUG USE FOR UNKNOWN INDICATION
     Route: 065
  11. LASIX [Concomitant]
     Indication: DRUG USE FOR UNKNOWN INDICATION
     Route: 065
  12. LIPITOR [Concomitant]
     Indication: DRUG USE FOR UNKNOWN INDICATION
     Route: 065
  13. NORVASC [Concomitant]
     Indication: DRUG USE FOR UNKNOWN INDICATION
     Route: 065
  14. ENALAPRIL MALEATE [Concomitant]
     Indication: DRUG USE FOR UNKNOWN INDICATION
     Route: 065
  15. PEPCID [Concomitant]
     Indication: DRUG USE FOR UNKNOWN INDICATION
     Route: 065
  16. EVISTA [Concomitant]
     Indication: DRUG USE FOR UNKNOWN INDICATION
     Route: 065
  17. INSULIN [Concomitant]
     Route: 065

REACTIONS (18)
  - ABDOMINAL PAIN [None]
  - BURNING SENSATION [None]
  - CEREBROVASCULAR ACCIDENT [None]
  - DIABETES MELLITUS [None]
  - DIARRHOEA [None]
  - DYSPNOEA [None]
  - ENDOCARDITIS [None]
  - FEELING HOT [None]
  - FLUSHING [None]
  - HYPOAESTHESIA [None]
  - HYPOTENSION [None]
  - LETHARGY [None]
  - NAUSEA [None]
  - PARAESTHESIA [None]
  - RESPIRATORY FAILURE [None]
  - UNRESPONSIVE TO STIMULI [None]
  - VISION BLURRED [None]
  - VOMITING [None]
